FAERS Safety Report 21928607 (Version 1)
Quarter: 2023Q1

REPORT INFORMATION
  Report Type: Spontaneous
  Country: US (occurrence: US)
  Receive Date: 20230130
  Receipt Date: 20230130
  Transmission Date: 20230417
  Serious: No
  Sender: FDA-Public Use
  Company Number: US-drreddys-SPO/USA/22/0158728

PATIENT
  Age: 94 Year
  Sex: Male

DRUGS (5)
  1. LENALIDOMIDE [Suspect]
     Active Substance: LENALIDOMIDE
     Indication: Plasma cell myeloma
     Dosage: TAKE 1 CAPSULE BY MOUTH EVERY DAY FOR 14 DAYS, THEN 14 DAYS OFF
     Route: 048
  2. Dexamethasone TAB 4MG [Concomitant]
     Indication: Product used for unknown indication
  3. ACYCLOVIR [Concomitant]
     Active Substance: ACYCLOVIR
     Indication: Product used for unknown indication
  4. AMOXICILLIN- TAB 875-125M [Concomitant]
     Indication: Product used for unknown indication
     Dosage: 875-125M
  5. REVLIMID CAP 5MG [Concomitant]
     Indication: Product used for unknown indication

REACTIONS (2)
  - Oropharyngeal pain [Not Recovered/Not Resolved]
  - Product use issue [Unknown]
